FAERS Safety Report 15681960 (Version 1)
Quarter: 2018Q4

REPORT INFORMATION
  Report Type: Spontaneous
  Country: US (occurrence: US)
  Receive Date: 20181119
  Receipt Date: 20181119
  Transmission Date: 20190205
  Serious: Yes (Life-Threatening, Hospitalization, Disabling, Other)
  Sender: FDA-Public Use
  Company Number: None

PATIENT
  Age: 70 Year
  Sex: Male
  Weight: 63.5 kg

DRUGS (8)
  1. AMIODARONE 200MG TABLETS ZYG MFG: ZYD (SUBSTITUTED FOR CORDARONE) [Suspect]
     Active Substance: AMIODARONE
     Indication: ARRHYTHMIA
     Dosage: ?          QUANTITY:1 DF DOSAGE FORM;?
     Route: 048
     Dates: start: 20120125, end: 20131010
  2. ASPIRIN. [Concomitant]
     Active Substance: ASPIRIN
  3. LEVOTHYROXINE (LEVOXYL [Concomitant]
  4. VALSARTAN (DIOVAN) [Concomitant]
  5. COREG [Concomitant]
     Active Substance: CARVEDILOL
  6. XANAX [Concomitant]
     Active Substance: ALPRAZOLAM
  7. OMEGA-3 ACIDS [Concomitant]
     Active Substance: OMEGA-3 FATTY ACIDS
  8. COENZYME Q10 [Concomitant]
     Active Substance: UBIDECARENONE

REACTIONS (14)
  - Fatigue [None]
  - Palpitations [None]
  - Hyperthyroidism [None]
  - Blood thyroid stimulating hormone abnormal [None]
  - Choking [None]
  - General physical condition abnormal [None]
  - Weight decreased [None]
  - Speech disorder [None]
  - Dizziness [None]
  - Atrial fibrillation [None]
  - Dysphagia [None]
  - Asthenia [None]
  - Muscular weakness [None]
  - Malaise [None]
